FAERS Safety Report 12231638 (Version 1)
Quarter: 2016Q2

REPORT INFORMATION
  Report Type: Spontaneous
  Country: US (occurrence: US)
  Receive Date: 20160401
  Receipt Date: 20160401
  Transmission Date: 20160815
  Serious: Yes (Other)
  Sender: FDA-Public Use
  Company Number: US-INCYTE CORPORATION-2016IN000754

PATIENT
  Age: 83 Year
  Sex: Female
  Weight: 48.73 kg

DRUGS (25)
  1. JAKAFI [Suspect]
     Active Substance: RUXOLITINIB
     Dosage: 15 MG, BID
     Route: 048
     Dates: start: 201506
  2. JAKAFI [Suspect]
     Active Substance: RUXOLITINIB
     Dosage: 15 MG, BID
     Route: 048
     Dates: start: 20150828
  3. JAKAFI [Suspect]
     Active Substance: RUXOLITINIB
     Dosage: 10 MG, QD
     Route: 048
     Dates: start: 20151105
  4. JAKAFI [Suspect]
     Active Substance: RUXOLITINIB
     Dosage: 10 MG, BID
     Route: 048
     Dates: start: 20160309
  5. HYDREA [Suspect]
     Active Substance: HYDROXYUREA
     Dosage: 1000 MG, QD
     Dates: start: 20141029
  6. VITAMIN D3 [Concomitant]
     Active Substance: CHOLECALCIFEROL
     Indication: PRODUCT USED FOR UNKNOWN INDICATION
     Dosage: 2,000 UNIT CAP
  7. JAKAFI [Suspect]
     Active Substance: RUXOLITINIB
     Dosage: 10 MG, BID
     Route: 048
     Dates: start: 201510
  8. OMEGA 3                            /01334101/ [Concomitant]
     Active Substance: OMEGA-3 FATTY ACIDS
     Indication: PRODUCT USED FOR UNKNOWN INDICATION
  9. HYDREA [Suspect]
     Active Substance: HYDROXYUREA
     Dosage: 1000 MG, BID
     Dates: start: 201406
  10. HYDREA [Suspect]
     Active Substance: HYDROXYUREA
     Indication: ESSENTIAL THROMBOCYTHAEMIA
     Dosage: 500 MG, BID
  11. HYDREA [Suspect]
     Active Substance: HYDROXYUREA
     Dosage: 1000 MG, QD
     Dates: start: 201406
  12. HYDREA [Suspect]
     Active Substance: HYDROXYUREA
     Dosage: 1000/1000/1500
     Dates: start: 201411
  13. HYDREA [Suspect]
     Active Substance: HYDROXYUREA
     Dosage: 500 MG, QOD
     Dates: start: 201504, end: 20150513
  14. HYDREA [Suspect]
     Active Substance: HYDROXYUREA
     Dosage: 1000 MG PER DAY
     Dates: start: 201603
  15. IRON [Concomitant]
     Active Substance: IRON
     Indication: PRODUCT USED FOR UNKNOWN INDICATION
     Dosage: 600 MCG CAP
  16. MULTIVITAMIN                       /00097801/ [Concomitant]
     Active Substance: VITAMINS
     Indication: PRODUCT USED FOR UNKNOWN INDICATION
     Dosage: 18 MG
  17. JAKAFI [Suspect]
     Active Substance: RUXOLITINIB
     Dosage: 10 MG, BID
     Route: 048
     Dates: start: 20150722
  18. HYDREA [Suspect]
     Active Substance: HYDROXYUREA
     Dosage: 1000/500
     Dates: start: 201504
  19. ECOTRIN [Concomitant]
     Active Substance: ASPIRIN
     Indication: PRODUCT USED FOR UNKNOWN INDICATION
     Dosage: 81 MG TAB
  20. ESTER-C                            /00008001/ [Concomitant]
     Indication: PRODUCT USED FOR UNKNOWN INDICATION
     Dosage: 500 MG-200 MG TAB
  21. JAKAFI [Suspect]
     Active Substance: RUXOLITINIB
     Indication: MYELOFIBROSIS
     Dosage: 5 MG, BID
     Route: 048
     Dates: start: 20150307
  22. JAKAFI [Suspect]
     Active Substance: RUXOLITINIB
     Dosage: 10 MG, BID
     Route: 048
     Dates: start: 201503
  23. HYDREA [Suspect]
     Active Substance: HYDROXYUREA
     Dosage: 1500/1000MG
     Dates: start: 20140826
  24. JAKAFI [Suspect]
     Active Substance: RUXOLITINIB
     Dosage: 10 MG, BID
     Route: 048
     Dates: start: 20160207
  25. COD LIVER OIL [Concomitant]
     Active Substance: COD LIVER OIL
     Indication: PRODUCT USED FOR UNKNOWN INDICATION

REACTIONS (9)
  - Weight decreased [Unknown]
  - Erythema [Unknown]
  - Platelet count increased [Recovering/Resolving]
  - Cataract [Unknown]
  - Leukopenia [Unknown]
  - Headache [Unknown]
  - Anaemia [Unknown]
  - Heart rate irregular [Unknown]
  - Skin fissures [Unknown]

NARRATIVE: CASE EVENT DATE: 201509
